FAERS Safety Report 9309389 (Version 2)
Quarter: 2014Q4

REPORT INFORMATION
  Report Type: Spontaneous
  Country: US (occurrence: US)
  Receive Date: 20130525
  Receipt Date: 20141205
  Transmission Date: 20150529
  Serious: No
  Sender: FDA-Public Use
  Company Number: US-BRISTOL-MYERS SQUIBB COMPANY-18583716

PATIENT
  Age: 51 Year
  Sex: Female
  Weight: 108.84 kg

DRUGS (8)
  1. GLYBURIDE. [Concomitant]
     Active Substance: GLYBURIDE
     Route: 048
  2. LISINOPRIL. [Concomitant]
     Active Substance: LISINOPRIL
     Indication: BLOOD CHOLESTEROL
  3. JANUMET [Concomitant]
     Active Substance: METFORMIN HYDROCHLORIDE\SITAGLIPTIN PHOSPHATE
     Indication: TYPE 2 DIABETES MELLITUS
     Route: 048
  4. ACTOS [Concomitant]
     Active Substance: PIOGLITAZONE HYDROCHLORIDE
  5. BYDUREON [Suspect]
     Active Substance: EXENATIDE
     Indication: TYPE 2 DIABETES MELLITUS
     Dosage: INJECTION
     Route: 058
     Dates: start: 201210
  6. GLIMEPIRIDE. [Concomitant]
     Active Substance: GLIMEPIRIDE
     Indication: TYPE 2 DIABETES MELLITUS
     Route: 048
  7. KOMBIGLYZE XR [Concomitant]
     Active Substance: METFORMIN HYDROCHLORIDE\SAXAGLIPTIN HYDROCHLORIDE
  8. LOVASTATIN. [Concomitant]
     Active Substance: LOVASTATIN

REACTIONS (4)
  - Stress [Unknown]
  - Weight decreased [Not Recovered/Not Resolved]
  - Blood glucose increased [Not Recovered/Not Resolved]
  - Viral infection [Unknown]

NARRATIVE: CASE EVENT DATE: 201210
